FAERS Safety Report 4779355-4 (Version None)
Quarter: 2005Q3

REPORT INFORMATION
  Report Type: 
  Country: None (occurrence: None)
  Receive Date: 20050914
  Receipt Date: 20050628
  Transmission Date: 20060218
  Serious: Yes (Other)
  Sender: FDA-Public Use
  Company Number: 409340

PATIENT
  Sex: Female

DRUGS (1)
  1. BONIVA [Suspect]
     Dates: start: 20050626

REACTIONS (3)
  - ABDOMINAL PAIN [None]
  - MUSCULOSKELETAL PAIN [None]
  - MYALGIA [None]
